FAERS Safety Report 7756975-6 (Version None)
Quarter: 2011Q3

REPORT INFORMATION
  Report Type: 
  Country: None (occurrence: None)
  Receive Date: 20110916
  Receipt Date: 20110916
  Transmission Date: 20111222
  Serious: Yes (Life-Threatening, Hospitalization, Other)
  Sender: FDA-Public Use
  Company Number: None

PATIENT
  Age: 28 Year
  Sex: Female
  Weight: 71.214 kg

DRUGS (1)
  1. NORVASC [Suspect]

REACTIONS (5)
  - OEDEMA PERIPHERAL [None]
  - SYNCOPE [None]
  - ECZEMA [None]
  - MIGRAINE [None]
  - HEART RATE INCREASED [None]
